FAERS Safety Report 13848515 (Version 2)
Quarter: 2017Q3

REPORT INFORMATION
  Report Type: Spontaneous
  Country: KR (occurrence: KR)
  Receive Date: 20170809
  Receipt Date: 20170811
  Transmission Date: 20171127
  Serious: Yes (Death)
  Sender: FDA-Public Use
  Company Number: KR-STRIDES ARCOLAB LIMITED-2017SP011524

PATIENT

DRUGS (6)
  1. FLUDARABINE [Suspect]
     Active Substance: FLUDARABINE PHOSPHATE
     Indication: STEM CELL TRANSPLANT
     Dosage: UNKNOWN
     Route: 065
  2. CICLOSPORIN [Suspect]
     Active Substance: CYCLOSPORINE
     Indication: PROPHYLAXIS AGAINST GRAFT VERSUS HOST DISEASE
     Dosage: UNKNOWN
     Route: 065
  3. METHOTREXATE. [Suspect]
     Active Substance: METHOTREXATE
     Indication: ACUTE GRAFT VERSUS HOST DISEASE
     Dosage: UNKNOWN
     Route: 065
  4. MYCOPHENOLATE MOFETIL. [Suspect]
     Active Substance: MYCOPHENOLATE MOFETIL
     Indication: PROPHYLAXIS AGAINST GRAFT VERSUS HOST DISEASE
     Dosage: UNKNOWN
     Route: 065
  5. INFLIXIMAB [Suspect]
     Active Substance: INFLIXIMAB
     Indication: ACUTE GRAFT VERSUS HOST DISEASE
     Dosage: UNKNOWN
     Route: 065
  6. MELPHALAN. [Suspect]
     Active Substance: MELPHALAN
     Indication: STEM CELL TRANSPLANT
     Dosage: UNKNOWN
     Route: 065

REACTIONS (4)
  - Off label use [Unknown]
  - Infection reactivation [Fatal]
  - Drug ineffective for unapproved indication [Fatal]
  - Respiratory syncytial virus infection [Fatal]
